FAERS Safety Report 16673743 (Version 1)
Quarter: 2019Q3

REPORT INFORMATION
  Report Type: Spontaneous
  Country: ES (occurrence: ES)
  Receive Date: 20190806
  Receipt Date: 20190806
  Transmission Date: 20191004
  Serious: Yes (Life-Threatening, Other)
  Sender: FDA-Public Use
  Company Number: ES-PFIZER INC-2019334394

PATIENT
  Age: 16 Year
  Sex: Male
  Weight: 48.5 kg

DRUGS (1)
  1. METHOTREXATE. [Suspect]
     Active Substance: METHOTREXATE
     Indication: NON-HODGKIN^S LYMPHOMA
     Dosage: 15 MG, UNK
     Route: 037
     Dates: start: 20190125, end: 20190125

REACTIONS (4)
  - Epilepsy [Recovered/Resolved]
  - Hypertension [Recovered/Resolved]
  - Depressed level of consciousness [Recovered/Resolved]
  - Abnormal behaviour [Recovered/Resolved]

NARRATIVE: CASE EVENT DATE: 20190209
